FAERS Safety Report 8339731-X (Version None)
Quarter: 2012Q2

REPORT INFORMATION
  Report Type: 
  Country: None (occurrence: None)
  Receive Date: 20120502
  Receipt Date: 20120417
  Transmission Date: 20120825
  Serious: Yes (Hospitalization)
  Sender: FDA-Public Use
  Company Number: SULF20120003

PATIENT
  Age: 8 Year
  Sex: Female

DRUGS (6)
  1. MESALAMINE [Suspect]
     Indication: COLITIS ULCERATIVE
  2. FOLIC ACID [Concomitant]
  3. HYDROCORTISONE [Concomitant]
  4. SULFASALAZINE [Suspect]
     Indication: COLITIS ULCERATIVE
  5. DICOFLOR (LACTOBACILLUS NOS) (LACTOBACILLUS NOS) [Concomitant]
  6. METRONIDAZOLE [Concomitant]

REACTIONS (3)
  - EOSINOPHILIC COLITIS [None]
  - DRUG INTOLERANCE [None]
  - COLITIS ULCERATIVE [None]
